FAERS Safety Report 7950267-8 (Version None)
Quarter: 2011Q4

REPORT INFORMATION
  Report Type: 
  Country: None (occurrence: None)
  Receive Date: 20111130
  Receipt Date: 20111118
  Transmission Date: 20120403
  Serious: Yes (Hospitalization, Other)
  Sender: FDA-Public Use
  Company Number: US-JNJFOC-20111108816

PATIENT
  Sex: Female
  Weight: 61.24 kg

DRUGS (19)
  1. FENOFIBRATE [Concomitant]
     Indication: BLOOD CHOLESTEROL
     Route: 048
     Dates: start: 20070101
  2. METOPROLOL TARTRATE [Concomitant]
     Indication: CHEST PAIN
     Route: 048
     Dates: start: 20090101
  3. BUPROPION HCL [Concomitant]
     Indication: DEPRESSION
     Route: 048
     Dates: start: 20010101
  4. METOPROLOL TARTRATE [Concomitant]
     Indication: BLOOD PRESSURE
     Route: 048
     Dates: start: 20090101
  5. ACETYLCYSTEINE [Concomitant]
     Dosage: NAC ESSENTIAL AMINO ACID VITAMIN
  6. VICODIN [Concomitant]
     Indication: PAIN
     Dosage: 5/500MG/TABLET/U/AS NEEDED/ORAL
     Route: 048
     Dates: start: 20090101
  7. VOLTAREN [Concomitant]
     Indication: ANTIINFLAMMATORY THERAPY
     Route: 061
     Dates: start: 20110101
  8. PANTOPRAZOLE [Concomitant]
     Indication: GASTROOESOPHAGEAL REFLUX DISEASE
     Route: 048
     Dates: start: 20060101
  9. LIPITOR [Concomitant]
     Indication: BLOOD CHOLESTEROL
     Route: 048
     Dates: start: 20030101
  10. FLUTICASONE PROPIONATE [Concomitant]
     Indication: MULTIPLE ALLERGIES
     Dosage: 2 SPRAYS IN EACH NOSTRIL
     Route: 045
     Dates: start: 20090101
  11. REMICADE [Suspect]
     Indication: RHEUMATOID ARTHRITIS
     Route: 042
     Dates: start: 20110628
  12. VALIUM [Concomitant]
     Indication: ANXIETY
     Route: 048
     Dates: start: 20030101
  13. ALLEGRA [Concomitant]
     Indication: MULTIPLE ALLERGIES
     Route: 048
     Dates: start: 20090101
  14. PANTOPRAZOLE [Concomitant]
     Indication: COUGH
     Route: 048
     Dates: start: 20060101
  15. VICODIN [Concomitant]
     Indication: MUSCLE SPASMS
     Dosage: 5/500MG/TABLET/U/AS NEEDED/ORAL
     Route: 048
     Dates: start: 20090101
  16. AMLODIPINE [Concomitant]
     Indication: BLOOD PRESSURE
     Route: 048
     Dates: start: 20090101
  17. ZOLPIDEM TARTRATE [Concomitant]
     Indication: SLEEP DISORDER THERAPY
     Dates: start: 20090101
  18. NITRATES [Concomitant]
     Indication: ANGINA PECTORIS
     Dosage: 0.4 4X25/TABLET/U/AS NEEDED/SUBLINGUAL
     Route: 060
     Dates: start: 20090101
  19. IMURAN [Concomitant]
     Indication: RHEUMATOID ARTHRITIS
     Route: 048
     Dates: start: 20110101

REACTIONS (8)
  - HALLUCINATION [None]
  - COUGH [None]
  - ARTHRALGIA [None]
  - FEELING ABNORMAL [None]
  - BLOOD POTASSIUM DECREASED [None]
  - DECREASED IMMUNE RESPONSIVENESS [None]
  - DIZZINESS [None]
  - PYREXIA [None]
